FAERS Safety Report 6172878-5 (Version None)
Quarter: 2009Q2

REPORT INFORMATION
  Report Type: 
  Country: None (occurrence: None)
  Receive Date: 20090430
  Receipt Date: 20090424
  Transmission Date: 20091009
  Serious: Yes (Hospitalization)
  Sender: FDA-Public Use
  Company Number: NZ-ROCHE-629856

PATIENT
  Sex: Female

DRUGS (2)
  1. GANCICLOVIR [Suspect]
     Indication: CYTOMEGALOVIRUS COLITIS
     Route: 042
  2. VALGANCICLOVIR HCL [Suspect]
     Indication: CYTOMEGALOVIRUS COLITIS
     Route: 048

REACTIONS (1)
  - PSYCHOTIC DISORDER [None]
